FAERS Safety Report 11622312 (Version 1)
Quarter: 2015Q4

REPORT INFORMATION
  Report Type: Spontaneous
  Country: US (occurrence: US)
  Receive Date: 20151013
  Receipt Date: 20151013
  Transmission Date: 20160304
  Serious: No
  Sender: FDA-Public Use
  Company Number: US-JNJFOC-20150201106

PATIENT
  Age: 77 Year
  Sex: Female
  Weight: 42.64 kg

DRUGS (1)
  1. TYLENOL EXTRA STRENGTH [Suspect]
     Active Substance: ACETAMINOPHEN
     Indication: PAIN IN EXTREMITY
     Route: 048
     Dates: start: 20150128, end: 20150129

REACTIONS (2)
  - Dysphagia [Recovered/Resolved]
  - Product quality issue [Unknown]
